FAERS Safety Report 17953515 (Version 1)
Quarter: 2020Q2

REPORT INFORMATION
  Report Type: Spontaneous
  Country: GB (occurrence: GB)
  Receive Date: 20200628
  Receipt Date: 20200628
  Transmission Date: 20200714
  Serious: Yes (Disabling, Other)
  Sender: FDA-Public Use
  Company Number: NVSC2020GB177542

PATIENT
  Age: 38 Year
  Sex: Female
  Weight: 127 kg

DRUGS (3)
  1. CO-AMOXICLAV [Suspect]
     Active Substance: AMOXICILLIN\CLAVULANATE POTASSIUM
     Indication: CHOLECYSTITIS INFECTIVE
     Dosage: 1 X TABLET OF 500/125MG   625MG  3 TIMES A DAY
     Route: 048
     Dates: start: 20200302
  2. QUETIAPINE. [Concomitant]
     Active Substance: QUETIAPINE
     Indication: PRODUCT USED FOR UNKNOWN INDICATION
     Dosage: 25 MG
     Route: 065
  3. LEVOTHYROXINE. [Concomitant]
     Active Substance: LEVOTHYROXINE
     Indication: PRODUCT USED FOR UNKNOWN INDICATION
     Dosage: 100 UG
     Route: 065

REACTIONS (16)
  - Oxygen saturation decreased [Recovered/Resolved]
  - Pollakiuria [Recovered/Resolved]
  - White blood cell count decreased [Recovered/Resolved]
  - Liver injury [Not Recovered/Not Resolved]
  - Blood pressure increased [Not Recovered/Not Resolved]
  - Yellow skin [Recovered/Resolved]
  - Night sweats [Recovered/Resolved]
  - Heart rate increased [Recovered/Resolved]
  - Pruritus [Recovered/Resolved]
  - Confusional state [Recovered/Resolved]
  - Bipolar I disorder [Recovered/Resolved with Sequelae]
  - Insomnia [Recovered/Resolved]
  - Muscle twitching [Recovered/Resolved]
  - Metrorrhagia [Recovered/Resolved]
  - Dehydration [Recovered/Resolved]
  - Pyrexia [Recovered/Resolved]

NARRATIVE: CASE EVENT DATE: 20200302
